FAERS Safety Report 4338883-6 (Version None)
Quarter: 2004Q2

REPORT INFORMATION
  Report Type: 
  Country: None (occurrence: None)
  Receive Date: 20040409
  Receipt Date: 20040402
  Transmission Date: 20050107
  Serious: Yes (Hospitalization)
  Sender: FDA-Public Use
  Company Number: 200410100BSV

PATIENT
  Age: 70 Year
  Sex: Female

DRUGS (10)
  1. CIPROFLOXACIN [Suspect]
     Indication: OSTEOMYELITIS
     Dosage: 1.5 G, TOTAL DAILY, ORAL
     Route: 048
  2. LEVOXIN (LEVOTHYROXINE SODIUM) [Concomitant]
     Indication: THYROID CANCER METASTATIC
     Dosage: 125 UG, TOTAL DAILY, ORAL
     Route: 048
  3. DOLCONTIN [Concomitant]
  4. ZOFRAN [Concomitant]
  5. FUROSEMIDE [Concomitant]
  6. INDERAL ^IMPERIAL CHEMICAL INDUSTRIES^ [Concomitant]
  7. HIPREX [Concomitant]
  8. KCL TAB [Concomitant]
  9. ALPHA ^LEO^ [Concomitant]
  10. KLEXANE [Concomitant]

REACTIONS (3)
  - BLOOD THYROID STIMULATING HORMONE INCREASED [None]
  - DRUG INTERACTION [None]
  - FREE THYROXINE INDEX INCREASED [None]
